FAERS Safety Report 22181332 (Version 1)
Quarter: 2023Q2

REPORT INFORMATION
  Report Type: Spontaneous
  Country: US (occurrence: None)
  Receive Date: 20230406
  Receipt Date: 20230406
  Transmission Date: 20230721
  Serious: No
  Sender: FDA-Public Use
  Company Number: None

PATIENT
  Age: 75 Year
  Sex: Male
  Weight: 76.5 kg

DRUGS (1)
  1. CIALIS [Suspect]
     Active Substance: TADALAFIL
     Indication: Erectile dysfunction
     Dates: start: 20230403, end: 20230403

REACTIONS (10)
  - Back pain [None]
  - Myalgia [None]
  - Dyspepsia [None]
  - Flushing [None]
  - Diarrhoea [None]
  - Vomiting [None]
  - Abdominal discomfort [None]
  - Feeling abnormal [None]
  - Asthenia [None]
  - Poisoning [None]

NARRATIVE: CASE EVENT DATE: 20230403
